FAERS Safety Report 8223827-7 (Version None)
Quarter: 2012Q1

REPORT INFORMATION
  Report Type: 
  Country: None (occurrence: None)
  Receive Date: 20120320
  Receipt Date: 20120320
  Transmission Date: 20120608
  Serious: Yes (Death)
  Sender: FDA-Public Use
  Company Number: None

PATIENT
  Age: 81 Year
  Sex: Male
  Weight: 88.9 kg

DRUGS (2)
  1. WARFARIN SODIUM [Suspect]
     Indication: ATRIAL FIBRILLATION
     Dosage: 4 MG EVERY DAY PO
     Route: 048
     Dates: start: 20030313, end: 20120228
  2. ENOXAPARIN [Suspect]
     Indication: ATRIAL FIBRILLATION
     Dosage: 90 MG BID SQ
     Route: 058
     Dates: start: 20120223, end: 20120227

REACTIONS (15)
  - ASTHENIA [None]
  - HAEMATURIA [None]
  - ABDOMINAL WALL HAEMATOMA [None]
  - CONDITION AGGRAVATED [None]
  - INTERNATIONAL NORMALISED RATIO DECREASED [None]
  - ATRIAL FIBRILLATION [None]
  - HYPOTENSION [None]
  - PRESYNCOPE [None]
  - ABDOMINAL PAIN [None]
  - RESPIRATORY ARREST [None]
  - CARDIAC FAILURE CONGESTIVE [None]
  - RETROPERITONEAL HAEMORRHAGE [None]
  - HEART SOUNDS ABNORMAL [None]
  - BLUE TOE SYNDROME [None]
  - HAEMOGLOBIN DECREASED [None]
